FAERS Safety Report 9924826 (Version 1)
Quarter: 2014Q1

REPORT INFORMATION
  Report Type: Spontaneous
  Country: US (occurrence: None)
  Receive Date: 20140224
  Receipt Date: 20140224
  Transmission Date: 20141002
  Serious: No
  Sender: FDA-Public Use
  Company Number: None

PATIENT
  Age: 47 Year
  Sex: Female
  Weight: 52.16 kg

DRUGS (3)
  1. MIRVASO TOPICAL GEL 0.33% GALDERMA [Suspect]
     Indication: ERYTHEMA
     Route: 061
     Dates: start: 20131201, end: 20140217
  2. MIRVASO TOPICAL GEL 0.33% GALDERMA [Suspect]
     Indication: ACNE
     Route: 061
     Dates: start: 20131201, end: 20140217
  3. MIRVASO TOPICAL GEL 0.33% GALDERMA [Suspect]
     Indication: ROSACEA
     Route: 061
     Dates: start: 20131201, end: 20140217

REACTIONS (1)
  - Type IV hypersensitivity reaction [None]
